FAERS Safety Report 6790287-2 (Version None)
Quarter: 2010Q2

REPORT INFORMATION
  Report Type: 
  Country: None (occurrence: None)
  Receive Date: 20100624
  Receipt Date: 20100614
  Transmission Date: 20101027
  Serious: Yes (Other)
  Sender: FDA-Public Use
  Company Number: US-BAXTER-2010BH014621

PATIENT
  Age: 21 Year
  Sex: Female
  Weight: 57 kg

DRUGS (14)
  1. GAMMAGARD LIQUID [Suspect]
     Indication: IMMUNODEFICIENCY COMMON VARIABLE
     Route: 042
     Dates: start: 20100527, end: 20100527
  2. GAMMAGARD LIQUID [Suspect]
     Indication: PRIMARY IMMUNODEFICIENCY SYNDROME
     Route: 042
     Dates: start: 20100527, end: 20100527
  3. GAMMAGARD LIQUID [Suspect]
     Route: 042
  4. GAMMAGARD LIQUID [Suspect]
     Route: 042
  5. GAMMAGARD LIQUID [Suspect]
     Route: 042
     Dates: start: 20100501, end: 20100501
  6. GAMMAGARD LIQUID [Suspect]
     Route: 042
     Dates: start: 20100501, end: 20100501
  7. ADVAIR DISKUS 100/50 [Concomitant]
     Indication: ASTHMA
     Route: 055
  8. ALBUTEROL [Concomitant]
     Indication: ASTHMA
  9. ZYRTEC [Concomitant]
     Indication: ASTHMA
     Route: 048
  10. LEVOTHYROXINE [Concomitant]
     Indication: THYROID DISORDER
     Route: 048
  11. PANTOPRAZOLE [Concomitant]
     Route: 048
  12. SINGULAIR [Concomitant]
     Indication: ASTHMA
     Route: 048
  13. TRAMADOL HCL [Concomitant]
     Indication: RESTLESSNESS
     Route: 048
  14. METHOCARBAMOL [Concomitant]
     Indication: MUSCLE SPASMS
     Route: 048

REACTIONS (6)
  - BLISTER [None]
  - ERYTHEMA [None]
  - HYPERSENSITIVITY [None]
  - HYPERTENSION [None]
  - PYREXIA [None]
  - URTICARIA [None]
